FAERS Safety Report 4931221-7 (Version None)
Quarter: 2006Q1

REPORT INFORMATION
  Report Type: 
  Country: None (occurrence: None)
  Receive Date: 20060302
  Receipt Date: 20060224
  Transmission Date: 20060701
  Serious: Yes (Death)
  Sender: FDA-Public Use
  Company Number: DE-MERCK-0602DEU00225

PATIENT
  Age: 61 Year
  Sex: Male

DRUGS (2)
  1. VIOXX [Suspect]
     Indication: RHEUMATOID ARTHRITIS
     Route: 048
  2. ETORICOXIB [Concomitant]
     Indication: RHEUMATOID ARTHRITIS
     Route: 048

REACTIONS (4)
  - COUGH [None]
  - DIABETES MELLITUS [None]
  - PULMONARY EMBOLISM [None]
  - TINNITUS [None]
